FAERS Safety Report 5208882-0 (Version None)
Quarter: 2007Q1

REPORT INFORMATION
  Report Type: 
  Country: None (occurrence: None)
  Receive Date: 20070111
  Receipt Date: 20070111
  Transmission Date: 20070707
  Serious: No
  Sender: FDA-Public Use
  Company Number: None

PATIENT
  Sex: Female

DRUGS (1)
  1. LYMPHAZURIN [Suspect]
     Dosage: 3 ML'S X ONE LOCAL INJECTION
     Dates: start: 20061207

REACTIONS (5)
  - AURICULAR SWELLING [None]
  - EYELID OEDEMA [None]
  - PERIORBITAL OEDEMA [None]
  - RASH [None]
  - RASH MACULAR [None]
